FAERS Safety Report 7755025-5 (Version None)
Quarter: 2011Q3

REPORT INFORMATION
  Report Type: 
  Country: None (occurrence: None)
  Receive Date: 20110916
  Receipt Date: 20110907
  Transmission Date: 20111222
  Serious: Yes (Other)
  Sender: FDA-Public Use
  Company Number: US-AMGEN-USASP2011039708

PATIENT
  Age: 61 Year
  Sex: Male

DRUGS (5)
  1. BYSTOLIC [Concomitant]
     Dosage: UNK
  2. TYLENOL (CAPLET) [Concomitant]
     Dosage: UNK
  3. ENBREL [Suspect]
     Indication: PSORIATIC ARTHROPATHY
     Dosage: 50 MG, WEEKLY
     Route: 058
     Dates: start: 20041001, end: 20110701
  4. MULTI-VITAMINS [Concomitant]
     Dosage: UNK
  5. LIPITOR [Concomitant]
     Dosage: UNK

REACTIONS (1)
  - ANAL CANCER [None]
